FAERS Safety Report 23736785 (Version 2)
Quarter: 2024Q2

REPORT INFORMATION
  Report Type: Spontaneous
  Country: US (occurrence: US)
  Receive Date: 20240412
  Receipt Date: 20240416
  Transmission Date: 20240716
  Serious: No
  Sender: FDA-Public Use
  Company Number: US-SA-SAC20240405001101

PATIENT

DRUGS (1)
  1. DUPIXENT [Suspect]
     Active Substance: DUPILUMAB
     Route: 065

REACTIONS (4)
  - Injection site swelling [Unknown]
  - Device defective [Unknown]
  - Injection site erythema [Unknown]
  - Incorrect dose administered by device [Unknown]
